FAERS Safety Report 24066605 (Version 1)
Quarter: 2024Q3

REPORT INFORMATION
  Report Type: Spontaneous
  Country: IN (occurrence: IN)
  Receive Date: 20240709
  Receipt Date: 20240709
  Transmission Date: 20241016
  Serious: Yes (Other)
  Sender: ROCHE
  Company Number: IN-002147023-NVSC2024IN128917

PATIENT
  Sex: Male

DRUGS (1)
  1. RANIBIZUMAB [Suspect]
     Active Substance: RANIBIZUMAB
     Indication: Age-related macular degeneration
     Dosage: UNK
     Route: 050
     Dates: start: 20240313

REACTIONS (5)
  - Cataract nuclear [Unknown]
  - Maculopathy [Unknown]
  - Dry eye [Unknown]
  - Cataract subcapsular [Unknown]
  - Retinal drusen [Unknown]
